FAERS Safety Report 13882982 (Version 1)
Quarter: 2017Q3

REPORT INFORMATION
  Report Type: Spontaneous
  Country: US (occurrence: US)
  Receive Date: 20170818
  Receipt Date: 20170818
  Transmission Date: 20171127
  Serious: No
  Sender: FDA-Public Use
  Company Number: US-SHIRE-US201718100

PATIENT
  Sex: Female

DRUGS (3)
  1. XIIDRA [Suspect]
     Active Substance: LIFITEGRAST
     Indication: DRY EYE
     Dosage: UNK UNK, 2X/DAY:BID
     Route: 047
     Dates: start: 20170512, end: 20170602
  2. XIIDRA [Suspect]
     Active Substance: LIFITEGRAST
     Dosage: UNK UNK, 2X/DAY:BID
     Route: 047
     Dates: start: 20170605
  3. ARTIFICIAL TEARS [Concomitant]
     Active Substance: GLYCERIN\HYPROMELLOSES\POLYETHYLENE GLYCOL 400

REACTIONS (3)
  - Blepharitis [Unknown]
  - Pain of skin [Unknown]
  - Alopecia [Unknown]

NARRATIVE: CASE EVENT DATE: 20170513
